FAERS Safety Report 15431888 (Version 1)
Quarter: 2018Q3

REPORT INFORMATION
  Report Type: Report from Study
  Country: CA (occurrence: CA)
  Receive Date: 20180926
  Receipt Date: 20180926
  Transmission Date: 20181010
  Serious: Yes (Hospitalization, Other)
  Sender: FDA-Public Use
  Company Number: CA-GLAXOSMITHKLINE-CA2018GSK173348

PATIENT
  Sex: Male

DRUGS (1)
  1. SALBUTAMOL SULPHATE [Suspect]
     Active Substance: ALBUTEROL SULFATE
     Indication: PRODUCT USED FOR UNKNOWN INDICATION
     Dosage: UNK

REACTIONS (8)
  - Treatment noncompliance [Unknown]
  - Asthma [Unknown]
  - Dyspnoea [Unknown]
  - Arthralgia [Unknown]
  - Rib fracture [Unknown]
  - Loss of consciousness [Unknown]
  - Fall [Unknown]
  - Intentional product misuse [Unknown]
